FAERS Safety Report 17690569 (Version 1)
Quarter: 2020Q2

REPORT INFORMATION
  Report Type: Report from Study
  Country: US (occurrence: US)
  Receive Date: 20200421
  Receipt Date: 20200421
  Transmission Date: 20200714
  Serious: Yes (Other)
  Sender: FDA-Public Use
  Company Number: US-AUROBINDO-AUR-APL-2020-019037

PATIENT
  Age: 79 Year
  Sex: Female

DRUGS (3)
  1. LIDOCAINE HYDROCHLORIDE INJECTION USP 2%(20MG/ML) [Suspect]
     Active Substance: LIDOCAINE HYDROCHLORIDE
     Indication: ANAESTHESIA EYE
     Dosage: UNK (5ML MIXTURE OF 2% LIDOCAINE (45%))
     Route: 065
  2. HYALURONIDASE [Suspect]
     Active Substance: HYALURONIDASE
     Indication: ANAESTHESIA EYE
     Dosage: UNK (150 UNITS OF HYALURONIDASE [HYLENEX] (10%))
     Route: 065
  3. BUPIVACAINE HYDROCHLORIDE INJECTION USP 0.75% (7.5 MG/ML) [Suspect]
     Active Substance: BUPIVACAINE HYDROCHLORIDE
     Indication: ANAESTHESIA EYE
     Dosage: UNK (45%)
     Route: 065

REACTIONS (2)
  - Akinesia [Unknown]
  - IIIrd nerve paralysis [Unknown]
